FAERS Safety Report 24020725 (Version 6)
Quarter: 2024Q4

REPORT INFORMATION
  Report Type: Spontaneous
  Country: US (occurrence: US)
  Receive Date: 20240627
  Receipt Date: 20241230
  Transmission Date: 20250114
  Serious: No
  Sender: PFIZER
  Company Number: US-PFIZER INC-PV202300200854

PATIENT
  Age: 79 Year
  Sex: Male
  Weight: 79.38 kg

DRUGS (10)
  1. BRAFTOVI [Suspect]
     Active Substance: ENCORAFENIB
     Indication: Malignant melanoma
     Dosage: 300 MG
     Route: 048
  2. BRAFTOVI [Suspect]
     Active Substance: ENCORAFENIB
     Dosage: 300 MG, 1X/DAY (TAKE 4 (75 MG) CAPSULES ONE TIME A DAY)
     Route: 048
  3. BRAFTOVI [Suspect]
     Active Substance: ENCORAFENIB
     Dosage: UNK (SEVEN DAYS OFF)
     Route: 048
  4. BRAFTOVI [Suspect]
     Active Substance: ENCORAFENIB
     Dosage: 225 MG, CYCLIC (TAKE 3 CAPSULES DAILY FOR 21 DAYS ON AND THEN OFF FOR 7 DAYS)
     Route: 048
  5. BRAFTOVI [Suspect]
     Active Substance: ENCORAFENIB
     Dosage: 225 MG, CYCLIC (TAKE 3 CAPSULES DAILY FOR 14 DAYS ON AND THEN OFF FOR 7 DAYS)
     Route: 048
  6. MEKTOVI [Suspect]
     Active Substance: BINIMETINIB
     Indication: Neoplasm malignant
     Dosage: 45 MG
     Route: 048
  7. MEKTOVI [Suspect]
     Active Substance: BINIMETINIB
     Dosage: UNK (SEVEN DAYS OFF)
     Route: 048
  8. MEKTOVI [Suspect]
     Active Substance: BINIMETINIB
     Dosage: 30 MG, CYCLIC (TAKE 1 TABLET TWICE DAILY FOR 21 DAYS ON ON AND THEN OFF FOR 7 DAYS)
     Route: 048
  9. MEKTOVI [Suspect]
     Active Substance: BINIMETINIB
     Dosage: 30 MG, CYCLIC (TAKE 1 TABLET BY BID FOR 14 DAYS 7 DAYS OFF )
     Route: 048
  10. MEKTOVI [Suspect]
     Active Substance: BINIMETINIB
     Dosage: 15 MG, CYCLIC (TAKE 1 TABLET BY BID FOR 14 DAYS 7 DAYS OFF)
     Route: 048

REACTIONS (2)
  - Full blood count abnormal [Unknown]
  - Off label use [Unknown]
